FAERS Safety Report 6628769-6 (Version None)
Quarter: 2010Q1

REPORT INFORMATION
  Report Type: 
  Country: None (occurrence: None)
  Receive Date: 20100311
  Receipt Date: 20100305
  Transmission Date: 20100710
  Serious: Yes (Hospitalization, Other)
  Sender: FDA-Public Use
  Company Number: US-BAYER-201016019NA

PATIENT
  Age: 45 Year
  Sex: Female

DRUGS (3)
  1. BETASERON [Suspect]
     Indication: RELAPSING-REMITTING MULTIPLE SCLEROSIS
     Dosage: TOTAL DAILY DOSE: 6 MIU
     Route: 058
     Dates: start: 20100113
  2. TOPAMAX [Suspect]
     Indication: MIGRAINE
     Route: 065
     Dates: start: 20100201
  3. TOPAMAX [Suspect]
     Route: 065

REACTIONS (3)
  - DELIRIUM [None]
  - INSOMNIA [None]
  - MIGRAINE [None]
